FAERS Safety Report 14148493 (Version 8)
Quarter: 2025Q1

REPORT INFORMATION
  Report Type: Spontaneous
  Country: DE (occurrence: DE)
  Receive Date: 20171101
  Receipt Date: 20250120
  Transmission Date: 20250409
  Serious: Yes (Death, Life-Threatening, Other)
  Sender: ACCORD
  Company Number: DE-MLMSERVICE-20171013-0924311-1

PATIENT
  Age: 47 Year
  Sex: Male

DRUGS (8)
  1. CISPLATIN [Suspect]
     Active Substance: CISPLATIN
     Indication: Lung squamous cell carcinoma stage III
     Dates: start: 201502
  2. DOCETAXEL [Suspect]
     Active Substance: DOCETAXEL
     Indication: Non-small cell lung cancer
     Dates: start: 2016
  3. GEMCITABINE [Suspect]
     Active Substance: GEMCITABINE
     Indication: Non-small cell lung cancer
     Dates: start: 2016
  4. VINORELBINE [Suspect]
     Active Substance: VINORELBINE TARTRATE
     Indication: Lung squamous cell carcinoma stage III
     Dates: start: 201502
  5. NIVOLUMAB [Suspect]
     Active Substance: NIVOLUMAB
     Indication: Lung squamous cell carcinoma stage III
     Dates: start: 201603, end: 201603
  6. DARUNAVIR [Concomitant]
     Active Substance: DARUNAVIR
     Indication: HIV infection
  7. DOLUTEGRAVIR [Concomitant]
     Active Substance: DOLUTEGRAVIR
     Indication: HIV infection
  8. RITONAVIR [Concomitant]
     Active Substance: RITONAVIR
     Indication: HIV infection

REACTIONS (5)
  - Drug ineffective [Fatal]
  - Bone marrow disorder [Unknown]
  - CD4 lymphocytes decreased [Unknown]
  - Enteritis [Fatal]
  - Neutropenic sepsis [Fatal]

NARRATIVE: CASE EVENT DATE: 20150101
